FAERS Safety Report 9706253 (Version 1)
Quarter: 2013Q4

REPORT INFORMATION
  Report Type: Spontaneous
  Country: AU (occurrence: AU)
  Receive Date: 20131125
  Receipt Date: 20131125
  Transmission Date: 20140711
  Serious: Yes (Other)
  Sender: FDA-Public Use
  Company Number: AU-ROCHE-1308531

PATIENT
  Sex: Female

DRUGS (1)
  1. LUCENTIS [Suspect]
     Indication: VASCULAR ENDOTHELIAL GROWTH FACTOR OVEREXPRESSION
     Route: 050

REACTIONS (2)
  - Cataract operation complication [Not Recovered/Not Resolved]
  - Cataract [Unknown]
